FAERS Safety Report 7850374-4 (Version None)
Quarter: 2011Q4

REPORT INFORMATION
  Report Type: 
  Country: None (occurrence: None)
  Receive Date: 20111024
  Receipt Date: 20111012
  Transmission Date: 20120403
  Serious: Yes (Hospitalization)
  Sender: FDA-Public Use
  Company Number: 1000024773

PATIENT
  Age: 77 Year
  Sex: Male

DRUGS (10)
  1. NEBIVOLOL HCL [Suspect]
     Indication: HYPERTENSION
     Dosage: (1 IN 1 D), ORAL
     Route: 048
     Dates: start: 20110101, end: 20110905
  2. VALSARTAN  AND HYDROCHLOROTHIAZIDE [Suspect]
     Dosage: 160/25 MG (1 IN 1 D), ORAL
     Route: 048
     Dates: end: 20110905
  3. UVEDOSE (COLECALCIFEROL) (COLECALCIFEROL) [Concomitant]
  4. NEBIVOLOL HCL [Suspect]
     Indication: HYPERTENSION
     Dosage: 5 MG (5 MG, 1 IN 1 D), ORAL
     Route: 048
     Dates: end: 20110816
  5. KARDEGIC (ACETYLSALICYLATE LYSINE) (ACETYLSALICYLATE LYSINE) [Concomitant]
  6. ALLOPURINOL [Concomitant]
  7. TADENAN (PRUNUS AFRICANA EXTRACT) [Suspect]
     Dosage: 100 MG (50 MG, 2 IN 1 D), ORAL
     Route: 048
     Dates: end: 20110905
  8. RASILEZ (ALISKIREN FUMARATE) [Suspect]
     Dosage: 300 MG (300 MG, 1 IN 1 D), ORAL
     Route: 048
     Dates: start: 20100401, end: 20110816
  9. RASILEZ (ALISKIREN FUMARATE) [Suspect]
     Dosage: (1 IN 1 D), ORAL
     Route: 048
     Dates: start: 20110101, end: 20110905
  10. LIPANTHYL (FENOFIBRATE) (FENOFIBRATE) [Concomitant]

REACTIONS (6)
  - RECTAL HAEMORRHAGE [None]
  - DEHYDRATION [None]
  - DIARRHOEA [None]
  - RENAL FAILURE ACUTE [None]
  - VOMITING [None]
  - ABDOMINAL PAIN [None]
